FAERS Safety Report 14078139 (Version 1)
Quarter: 2017Q4

REPORT INFORMATION
  Report Type: Spontaneous
  Country: US (occurrence: US)
  Receive Date: 20171011
  Receipt Date: 20171011
  Transmission Date: 20180321
  Serious: Yes (Other)
  Sender: FDA-Public Use
  Company Number: None

PATIENT
  Age: 43 Year
  Sex: Female
  Weight: 99 kg

DRUGS (10)
  1. SYNTHROID [Concomitant]
     Active Substance: LEVOTHYROXINE SODIUM
  2. FOLIC ACID. [Concomitant]
     Active Substance: FOLIC ACID
  3. DURAGESIC [Concomitant]
     Active Substance: FENTANYL
  4. IBRANCE [Concomitant]
     Active Substance: PALBOCICLIB
  5. MULTIVITAMINS [Concomitant]
     Active Substance: VITAMINS
  6. GINSENG [Concomitant]
     Active Substance: ASIAN GINSENG
  7. VITAMIN D [Concomitant]
     Active Substance: CHOLECALCIFEROL
  8. VITAMIN B12 [Concomitant]
     Active Substance: CYANOCOBALAMIN
  9. OXYCODONE 10MG [Suspect]
     Active Substance: OXYCODONE
     Indication: BONE CANCER METASTATIC
     Dosage: ?          QUANTITY:1 TABLET(S);?
     Route: 048
  10. MVI [Concomitant]
     Active Substance: VITAMINS

REACTIONS (2)
  - Drug effect decreased [None]
  - Pain [None]

NARRATIVE: CASE EVENT DATE: 20171002
